FAERS Safety Report 5684083-7 (Version None)
Quarter: 2008Q1

REPORT INFORMATION
  Report Type: 
  Country: None (occurrence: None)
  Receive Date: 20080328
  Receipt Date: 20070312
  Transmission Date: 20080703
  Serious: Yes (Hospitalization)
  Sender: FDA-Public Use
  Company Number: US-AMGEN-US210517

PATIENT
  Sex: Female

DRUGS (6)
  1. NEULASTA [Suspect]
     Indication: CHEMOTHERAPY
     Route: 058
     Dates: start: 20061209, end: 20061209
  2. EMEND [Suspect]
     Route: 065
  3. COMPAZINE [Concomitant]
     Route: 065
  4. ATIVAN [Concomitant]
     Route: 065
  5. ADRIAMYCIN PFS [Concomitant]
     Route: 065
  6. CYTOXAN [Concomitant]
     Route: 065

REACTIONS (3)
  - ANAPHYLACTIC SHOCK [None]
  - HYPERSENSITIVITY [None]
  - INJECTION SITE REACTION [None]
